FAERS Safety Report 9470361 (Version 27)
Quarter: 2018Q3

REPORT INFORMATION
  Report Type: Spontaneous
  Country: US (occurrence: US)
  Receive Date: 20130822
  Receipt Date: 20180910
  Transmission Date: 20181010
  Serious: Yes (Other)
  Sender: FDA-Public Use
  Company Number: US-SANOFI-AVENTIS-2013SA003716

PATIENT
  Age: 73 Year
  Sex: Female

DRUGS (26)
  1. MULTAQ [Suspect]
     Active Substance: DRONEDARONE
     Dosage: 400 MG,BID
     Route: 048
     Dates: start: 201005
  2. XANAX [Concomitant]
     Active Substance: ALPRAZOLAM
     Dosage: 0.5 MG, PRN
     Route: 065
  3. ERGOCALCIFEROL. [Concomitant]
     Active Substance: ERGOCALCIFEROL
     Indication: OSTEOPOROSIS
     Dosage: 1000 DF,UNK
     Route: 065
  4. SINTROM [Concomitant]
     Active Substance: ACENOCOUMAROL
     Dosage: UNK
     Route: 065
  5. MULTAQ [Suspect]
     Active Substance: DRONEDARONE
     Dosage: 400 MG,BID
     Route: 048
     Dates: start: 201005
  6. MULTAQ [Suspect]
     Active Substance: DRONEDARONE
     Dosage: 400 MG,BID
     Route: 048
     Dates: start: 201005
  7. MULTAQ [Suspect]
     Active Substance: DRONEDARONE
     Dosage: 400 MG,BID
     Route: 048
     Dates: start: 201005
  8. CALCIUM [Concomitant]
     Active Substance: CALCIUM
     Dosage: UNK
     Route: 065
  9. FISH OIL [Concomitant]
     Active Substance: FISH OIL
     Dosage: UNK
     Route: 065
  10. MULTAQ [Suspect]
     Active Substance: DRONEDARONE
     Indication: PALPITATIONS
     Dosage: 400 MG,BID
     Route: 048
     Dates: start: 201005
  11. MULTAQ [Suspect]
     Active Substance: DRONEDARONE
     Dosage: 400 MG, BID
     Route: 048
     Dates: start: 201005
  12. OMEPRAZOLE. [Suspect]
     Active Substance: OMEPRAZOLE
     Dosage: 40 MG,QD
     Route: 065
  13. CRESTOR [Concomitant]
     Active Substance: ROSUVASTATIN CALCIUM
     Dosage: 5 MG,QD
     Route: 065
  14. ALPRAZOLAM. [Concomitant]
     Active Substance: ALPRAZOLAM
     Indication: ANXIETY
     Dosage: .5 MG,PRN
     Route: 065
  15. MULTAQ [Suspect]
     Active Substance: DRONEDARONE
     Dosage: 400 MG,BID
     Route: 048
     Dates: start: 201005
  16. MULTAQ [Suspect]
     Active Substance: DRONEDARONE
     Dosage: 400 MG,BID
     Route: 048
     Dates: start: 201005
  17. XANAX [Concomitant]
     Active Substance: ALPRAZOLAM
     Indication: ANXIETY
     Dosage: 2 MG,PRN
     Route: 065
  18. ACETYLSALICYLIC ACID [Concomitant]
     Active Substance: ASPIRIN
     Dosage: 325 MG,HS
  19. CRESTOR [Concomitant]
     Active Substance: ROSUVASTATIN CALCIUM
     Dosage: 5 MG, QD
     Route: 065
  20. MAGNESIUM CITRATE. [Concomitant]
     Active Substance: MAGNESIUM CITRATE
     Dosage: UNK
     Route: 065
     Dates: start: 20140529
  21. CALCIUM CARBONATE. [Concomitant]
     Active Substance: CALCIUM CARBONATE
     Dosage: UNK
     Route: 065
  22. MULTAQ [Suspect]
     Active Substance: DRONEDARONE
     Dosage: 400 MG,BID
     Route: 048
     Dates: start: 201005
  23. MULTAQ [Suspect]
     Active Substance: DRONEDARONE
     Dosage: 400 MG,BID
     Route: 048
     Dates: start: 201005
  24. CENTRUM SILVER [ASCORBIC ACID;BETACAROTENE;BIOTIN;CALCIUM;CHROMIUM;COL [Concomitant]
     Dosage: UNK
     Route: 065
  25. MULTAQ [Suspect]
     Active Substance: DRONEDARONE
     Indication: ATRIAL FIBRILLATION
     Dosage: 400 MG,BID
     Route: 048
     Dates: start: 201005
  26. MIRALAX [Concomitant]
     Active Substance: POLYETHYLENE GLYCOL 3350
     Indication: GASTROINTESTINAL MOTILITY DISORDER
     Dosage: UNK,QD
     Route: 065
     Dates: start: 20140526, end: 20140529

REACTIONS (44)
  - Cough [Recovering/Resolving]
  - Sputum increased [Not Recovered/Not Resolved]
  - Electrocardiogram QT prolonged [Unknown]
  - Bradycardia [Not Recovered/Not Resolved]
  - Bundle branch block right [Unknown]
  - Dilatation atrial [Not Recovered/Not Resolved]
  - Tooth disorder [Not Recovered/Not Resolved]
  - Anxiety [Unknown]
  - Atrioventricular block first degree [Unknown]
  - Sleep apnoea syndrome [Not Recovered/Not Resolved]
  - Insomnia [Not Recovered/Not Resolved]
  - Nervousness [Unknown]
  - Gastrooesophageal reflux disease [Unknown]
  - Drug dose omission [Unknown]
  - Gastric disorder [Not Recovered/Not Resolved]
  - Lower respiratory tract infection [Not Recovered/Not Resolved]
  - Upper respiratory tract infection [Unknown]
  - Headache [Unknown]
  - Dyspepsia [Unknown]
  - Osteoporosis [Not Recovered/Not Resolved]
  - Scoliosis [Unknown]
  - Dry mouth [Unknown]
  - Malaise [Unknown]
  - Condition aggravated [Unknown]
  - Feeling abnormal [Unknown]
  - Chest pain [Recovered/Resolved]
  - Increased upper airway secretion [Unknown]
  - Dermatitis [Unknown]
  - Atrial fibrillation [Not Recovered/Not Resolved]
  - Back pain [Unknown]
  - Feeling hot [Recovered/Resolved]
  - Heart valve incompetence [Not Recovered/Not Resolved]
  - Heart rate irregular [Unknown]
  - Blood magnesium decreased [Unknown]
  - Dry eye [Unknown]
  - Constipation [Not Recovered/Not Resolved]
  - Wheezing [Not Recovered/Not Resolved]
  - Pain [Unknown]
  - Tinnitus [Recovering/Resolving]
  - Heart rate increased [Unknown]
  - Blood glucose decreased [Unknown]
  - Tremor [Unknown]
  - Palpitations [Not Recovered/Not Resolved]
  - Urinary tract infection [Unknown]

NARRATIVE: CASE EVENT DATE: 20130313
